FAERS Safety Report 6971800-9 (Version None)
Quarter: 2010Q3

REPORT INFORMATION
  Report Type: 
  Country: None (occurrence: None)
  Receive Date: 20100908
  Receipt Date: 20100901
  Transmission Date: 20110219
  Serious: Yes (Hospitalization, Disabling, Other)
  Sender: FDA-Public Use
  Company Number: US-MERCK-0205USA02234

PATIENT
  Age: 59 Year
  Sex: Female
  Weight: 70 kg

DRUGS (9)
  1. FOSAMAX [Suspect]
     Indication: OSTEOPENIA
     Route: 048
     Dates: start: 19940101, end: 20010101
  2. FOSAMAX [Suspect]
     Route: 048
     Dates: start: 20010101, end: 20020401
  3. FOSAMAX [Suspect]
     Route: 048
     Dates: start: 20030501, end: 20050401
  4. FEMHRT [Suspect]
     Route: 065
  5. ESTRACE [Suspect]
     Route: 065
  6. PROGESTERONE [Concomitant]
     Route: 065
  7. VIOXX [Concomitant]
     Route: 065
  8. PREMARIN [Concomitant]
     Indication: OSTEOPENIA
     Route: 065
  9. CALCIUM (UNSPECIFIED) [Concomitant]
     Indication: OSTEOPENIA
     Route: 065

REACTIONS (14)
  - BURSITIS [None]
  - DRUG INTERACTION [None]
  - FEMUR FRACTURE [None]
  - FOOT FRACTURE [None]
  - FRACTURE NONUNION [None]
  - GINGIVAL RECESSION [None]
  - HUMERUS FRACTURE [None]
  - LIMB CRUSHING INJURY [None]
  - LOW TURNOVER OSTEOPATHY [None]
  - MALIGNANT MELANOMA [None]
  - MENISCUS LESION [None]
  - OSTEOARTHRITIS [None]
  - OSTEOPOROSIS [None]
  - STRESS FRACTURE [None]
